APPROVED DRUG PRODUCT: PINDOLOL
Active Ingredient: PINDOLOL
Strength: 10MG
Dosage Form/Route: TABLET;ORAL
Application: A074019 | Product #002 | TE Code: AB
Applicant: AUROBINDO PHARMA USA INC
Approved: Sep 3, 1992 | RLD: No | RS: Yes | Type: RX